FAERS Safety Report 11449152 (Version 1)
Quarter: 2015Q3

REPORT INFORMATION
  Report Type: Spontaneous
  Country: US (occurrence: US)
  Receive Date: 20150902
  Receipt Date: 20150902
  Transmission Date: 20151125
  Serious: Yes (Other)
  Sender: FDA-Public Use
  Company Number: US-PFIZER INC-2015290334

PATIENT

DRUGS (2)
  1. PROZAC [Suspect]
     Active Substance: FLUOXETINE HYDROCHLORIDE
     Dosage: UNK UNK, 1X/DAY
  2. XANAX [Suspect]
     Active Substance: ALPRAZOLAM
     Dosage: 1 DF, DAILY

REACTIONS (8)
  - Hot flush [Unknown]
  - Anxiety [Unknown]
  - Fear [Unknown]
  - Neoplasm malignant [Unknown]
  - Depression [Unknown]
  - Feeling abnormal [Unknown]
  - Emotional disorder [Unknown]
  - Panic reaction [Unknown]

NARRATIVE: CASE EVENT DATE: 2007
